FAERS Safety Report 17268812 (Version 1)
Quarter: 2019Q4

REPORT INFORMATION
  Report Type: Spontaneous
  Country: US (occurrence: US)
  Receive Date: 20191223
  Receipt Date: 20191223
  Transmission Date: 20200122
  Serious: No
  Sender: FDA-Public Use
  Company Number: None

PATIENT
  Age: 35 Year
  Sex: Female

DRUGS (1)
  1. ENBREL [Suspect]
     Active Substance: ETANERCEPT
     Route: 058
     Dates: start: 20180321

REACTIONS (4)
  - Infection [None]
  - Pyrexia [None]
  - Product dispensing issue [None]
  - Product dose omission [None]

NARRATIVE: CASE EVENT DATE: 20191219
